FAERS Safety Report 5530138-7 (Version None)
Quarter: 2007Q4

REPORT INFORMATION
  Report Type: 
  Country: None (occurrence: None)
  Receive Date: 20071130
  Receipt Date: 20071126
  Transmission Date: 20080405
  Serious: Yes (Death)
  Sender: FDA-Public Use
  Company Number: PHHY2007BR00621

PATIENT
  Age: 65 Year
  Sex: Male

DRUGS (1)
  1. GALVUS MET [Suspect]
     Dosage: 100/850 MG
     Route: 048

REACTIONS (1)
  - DEATH [None]
